FAERS Safety Report 6362114-9 (Version None)
Quarter: 2009Q3

REPORT INFORMATION
  Report Type: 
  Country: None (occurrence: None)
  Receive Date: 20090918
  Receipt Date: 20090908
  Transmission Date: 20100115
  Serious: Yes (Congenital Anomaly)
  Sender: FDA-Public Use
  Company Number: TR-ELI_LILLY_AND_COMPANY-TR200909003443

PATIENT

DRUGS (3)
  1. HUMULIN R [Suspect]
     Dosage: 12 IU IN THE MORNING
     Route: 064
     Dates: start: 20090310, end: 20090813
  2. HUMULIN R [Suspect]
     Dosage: 18 IU, EACH EVENING
     Route: 064
     Dates: start: 20090310, end: 20090813
  3. IRON W/VITAMINS NOS [Concomitant]
     Dosage: UNK, DAILY (1/D)
     Route: 064
     Dates: start: 20090401, end: 20090813

REACTIONS (3)
  - CONGENITAL RENAL DISORDER [None]
  - CONGENITAL URINARY TRACT OBSTRUCTION [None]
  - DRUG EXPOSURE DURING PREGNANCY [None]
